FAERS Safety Report 6916019-2 (Version None)
Quarter: 2010Q3

REPORT INFORMATION
  Report Type: 
  Country: None (occurrence: None)
  Receive Date: 20100810
  Receipt Date: 20100730
  Transmission Date: 20110219
  Serious: Yes (Hospitalization)
  Sender: FDA-Public Use
  Company Number: FR-BIOGENIDEC-2010BI013172

PATIENT
  Age: 35 Year
  Sex: Female
  Weight: 60 kg

DRUGS (5)
  1. TYSABRI [Suspect]
     Indication: MULTIPLE SCLEROSIS
     Route: 042
     Dates: start: 20080430, end: 20090923
  2. AFLUZOZINE [Concomitant]
     Indication: URINARY TRACT DISORDER
     Dates: start: 20070913
  3. PHENYTOIN [Concomitant]
     Indication: NEURALGIA
     Dates: start: 20070913
  4. CLONAZEPAM [Concomitant]
     Indication: NEURALGIA
     Dates: start: 20070913
  5. LUTENYL [Concomitant]
     Indication: PREMENSTRUAL SYNDROME

REACTIONS (1)
  - HEPATITIS TOXIC [None]
